FAERS Safety Report 14716087 (Version 6)
Quarter: 2018Q4

REPORT INFORMATION
  Report Type: Report from Study
  Country: CN (occurrence: CN)
  Receive Date: 20180404
  Receipt Date: 20181030
  Transmission Date: 20190204
  Serious: Yes (Death, Hospitalization)
  Sender: FDA-Public Use
  Company Number: CN-AMGEN-CHNCT2018045077

PATIENT
  Age: 19 Year
  Sex: Male
  Weight: 58 kg

DRUGS (25)
  1. BLINATUMOMAB [Suspect]
     Active Substance: BLINATUMOMAB
     Indication: B PRECURSOR TYPE ACUTE LEUKAEMIA
     Dosage: 28 MUG, QD
     Route: 042
     Dates: start: 20180323, end: 20180329
  2. TORASEMIDE [Concomitant]
     Active Substance: TORSEMIDE
     Dosage: 20 MG, UNK
     Route: 042
     Dates: start: 20180318, end: 20180319
  3. BLOOD PLATELETS [Concomitant]
     Dosage: 1 - 2 UNK, UNK
     Route: 042
     Dates: start: 20180322, end: 20180404
  4. INSULIN HUMAN [Concomitant]
     Active Substance: INSULIN HUMAN
     Dosage: 6 - 24 UNK, UNK
     Dates: start: 20180327, end: 20180404
  5. INSULIN INJECTION [Concomitant]
     Active Substance: INSULIN NOS
     Dosage: 8 - 12 UNK, UNK
     Dates: start: 20180328, end: 20180404
  6. RED BLOOD CELLS, CONCENTRATED [Concomitant]
     Active Substance: HUMAN RED BLOOD CELL
     Dosage: 2-4  UNK, UNK
     Route: 042
     Dates: start: 20180324, end: 20180404
  7. VORICONAZOLE. [Concomitant]
     Active Substance: VORICONAZOLE
     Dosage: 200 MG, UNK AND 0.2 G Q12H
     Route: 048
     Dates: start: 20180317, end: 20180405
  8. CEFOPERAZONE SODIUM AND TAZOBACTAM SODIUM [Concomitant]
     Active Substance: CEFOPERAZONE\TAZOBACTAM SODIUM
     Dosage: 2.25 G, UNK
     Route: 042
     Dates: start: 20180321, end: 20180323
  9. FILGRASTIM [Concomitant]
     Active Substance: FILGRASTIM
     Dosage: 300 MUG, QD
     Route: 042
     Dates: start: 20180326, end: 20180405
  10. DEXAMETHASONE. [Concomitant]
     Active Substance: DEXAMETHASONE
     Dosage: 20 MG, UNK
     Dates: start: 20180323, end: 20180404
  11. IMIPENEM AND CILASTATIN SODIUM [Concomitant]
     Active Substance: CILASTATIN SODIUM\IMIPENEM
     Dosage: 1 G, Q8H
     Route: 042
     Dates: start: 20180317, end: 20180403
  12. POTASSIUM CHLORIDE. [Concomitant]
     Active Substance: POTASSIUM CHLORIDE
     Dosage: 10 ML, UNK
     Route: 042
     Dates: start: 20180318, end: 20180326
  13. AMIKACIN SULFATE. [Concomitant]
     Active Substance: AMIKACIN SULFATE
     Dosage: 0.4 G, QD
     Route: 042
     Dates: start: 20180317, end: 20180403
  14. CYTARABINE. [Concomitant]
     Active Substance: CYTARABINE
     Dosage: 0.05 G, UNK
     Route: 037
     Dates: start: 20180322, end: 20180322
  15. BLOOD PLASMA [Concomitant]
     Dosage: 2 - 4.5 UNK, UNK
     Route: 042
     Dates: start: 20180321, end: 20180403
  16. FUROSEMIDE. [Concomitant]
     Active Substance: FUROSEMIDE
     Dosage: 20 MG, UNK
     Route: 042
     Dates: start: 20180320, end: 20180404
  17. SODIUM BICARBONATE. [Concomitant]
     Active Substance: SODIUM BICARBONATE
     Dosage: 100 ML, UNK
     Route: 042
     Dates: start: 20180318, end: 20180326
  18. METHOTREXATE. [Concomitant]
     Active Substance: METHOTREXATE
     Dosage: 10 MG, UNK
     Route: 037
     Dates: start: 20180322, end: 20180322
  19. BLINATUMOMAB [Suspect]
     Active Substance: BLINATUMOMAB
     Dosage: UNK
     Route: 065
     Dates: start: 20180403
  20. PANTOPRAZOLE SODIUM. [Concomitant]
     Active Substance: PANTOPRAZOLE SODIUM
     Dosage: 40 MG, UNK
     Route: 042
     Dates: start: 20180318, end: 20180326
  21. MOXIFLOXACIN HYDROCHLORIDE. [Concomitant]
     Active Substance: MOXIFLOXACIN HYDROCHLORIDE
     Dosage: 0.4 G, UNK
     Route: 048
     Dates: start: 20180323, end: 20180405
  22. HUMAN IMMUNOGLOBULIN [Concomitant]
     Active Substance: HUMAN IMMUNOGLOBULIN G
     Dosage: 10 G, UNK
     Route: 042
     Dates: start: 20180326, end: 20180401
  23. DEXAMETHASONE SODIUM PHOSPHATE. [Concomitant]
     Active Substance: DEXAMETHASONE SODIUM PHOSPHATE
     Dosage: 2.5 - 5 MG, UNK
     Dates: start: 20180317, end: 20180404
  24. SODIUM LACTATE. [Concomitant]
     Active Substance: SODIUM LACTATE
     Dosage: 500 ML, UNK
     Route: 042
     Dates: start: 20180318, end: 20180401
  25. LIDOCAINE HYDROCHLORIDE. [Concomitant]
     Active Substance: LIDOCAINE HYDROCHLORIDE
     Dosage: 0.4 G, UNK
     Route: 058
     Dates: start: 20180322, end: 20180322

REACTIONS (2)
  - Neutropenic infection [Not Recovered/Not Resolved]
  - Haemorrhage [Fatal]

NARRATIVE: CASE EVENT DATE: 20180329
